FAERS Safety Report 15433989 (Version 1)
Quarter: 2018Q3

REPORT INFORMATION
  Report Type: Spontaneous
  Country: US (occurrence: US)
  Receive Date: 20180927
  Receipt Date: 20180927
  Transmission Date: 20181010
  Serious: No
  Sender: FDA-Public Use
  Company Number: US-BEH-2018095121

PATIENT
  Sex: Female

DRUGS (1)
  1. PRIVIGEN [Suspect]
     Active Substance: HUMAN IMMUNOGLOBULIN G
     Indication: DERMATITIS ATOPIC
     Dosage: 40 MG, QD (DAILY FOR 5 DAYS EVERY)
     Route: 042
     Dates: start: 20180827

REACTIONS (2)
  - Decreased appetite [Unknown]
  - Headache [Unknown]
